FAERS Safety Report 8210618-6 (Version None)
Quarter: 2012Q1

REPORT INFORMATION
  Report Type: 
  Country: None (occurrence: None)
  Receive Date: 20120314
  Receipt Date: 20120312
  Transmission Date: 20120608
  Serious: Yes (Life-Threatening, Hospitalization, Other)
  Sender: FDA-Public Use
  Company Number: NO-MERCK-1202NOR00026

PATIENT
  Age: 58 Year
  Sex: Male

DRUGS (2)
  1. FOSAPREPITANT DIMEGLUMINE [Suspect]
     Route: 051
     Dates: start: 20120216
  2. OXALIPLATIN [Suspect]
     Route: 041

REACTIONS (1)
  - HAEMOLYTIC URAEMIC SYNDROME [None]
